FAERS Safety Report 25835220 (Version 1)
Quarter: 2025Q3

REPORT INFORMATION
  Report Type: Report from Study
  Country: JP (occurrence: JP)
  Receive Date: 20250923
  Receipt Date: 20250923
  Transmission Date: 20251021
  Serious: Yes (Other)
  Sender: RANBAXY
  Company Number: JP-SUN PHARMACEUTICAL INDUSTRIES LTD-2025R1-528258

PATIENT
  Age: 6 Decade
  Sex: Male

DRUGS (1)
  1. MESALAMINE [Suspect]
     Active Substance: MESALAMINE
     Indication: Colitis ulcerative
     Route: 065

REACTIONS (4)
  - Drug intolerance [Unknown]
  - Haematochezia [Unknown]
  - Abdominal pain [Unknown]
  - Diarrhoea [Unknown]
